FAERS Safety Report 16239758 (Version 1)
Quarter: 2019Q2

REPORT INFORMATION
  Report Type: Spontaneous
  Country: US (occurrence: US)
  Receive Date: 20190425
  Receipt Date: 20190425
  Transmission Date: 20190711
  Serious: No
  Sender: FDA-Public Use
  Company Number: US-SUNOVION-2019SUN001558

PATIENT
  Sex: Female

DRUGS (4)
  1. LATUDA [Suspect]
     Active Substance: LURASIDONE HYDROCHLORIDE
     Dosage: 40 MG
     Route: 048
  2. LITHIUM ACETATE [Suspect]
     Active Substance: LITHIUM ACETATE
     Dosage: 300 MG, QD
     Route: 065
  3. LATUDA [Suspect]
     Active Substance: LURASIDONE HYDROCHLORIDE
     Dosage: 30 MG
     Route: 048
  4. LITHIUM ACETATE [Suspect]
     Active Substance: LITHIUM ACETATE
     Dosage: 300 MG, BID
     Route: 065

REACTIONS (2)
  - Thirst [Unknown]
  - Paraesthesia [Unknown]
